FAERS Safety Report 6835192-8 (Version None)
Quarter: 2010Q3

REPORT INFORMATION
  Report Type: 
  Country: None (occurrence: None)
  Receive Date: 20100713
  Receipt Date: 20100603
  Transmission Date: 20110219
  Serious: No
  Sender: FDA-Public Use
  Company Number: 2010BI002563

PATIENT
  Sex: Female

DRUGS (1)
  1. TYSABRI [Suspect]
     Indication: MULTIPLE SCLEROSIS
     Route: 042
     Dates: start: 20091214, end: 20091214

REACTIONS (4)
  - BURNING SENSATION [None]
  - DYSPHAGIA [None]
  - MUSCLE SPASTICITY [None]
  - PRIMARY PROGRESSIVE MULTIPLE SCLEROSIS [None]
